FAERS Safety Report 5897112-2 (Version None)
Quarter: 2008Q3

REPORT INFORMATION
  Report Type: 
  Country: None (occurrence: None)
  Receive Date: 20080923
  Receipt Date: 20080911
  Transmission Date: 20090109
  Serious: Yes (Hospitalization, Other)
  Sender: FDA-Public Use
  Company Number: 52390

PATIENT
  Age: 86 Year
  Sex: Male

DRUGS (1)
  1. CLINDAMYCIN PHOSPHATE [Suspect]

REACTIONS (8)
  - BLISTER [None]
  - EXOSTOSIS [None]
  - INCREASED UPPER AIRWAY SECRETION [None]
  - OESOPHAGEAL OBSTRUCTION [None]
  - PAIN [None]
  - PHARYNGEAL INJURY [None]
  - SENSATION OF FOREIGN BODY [None]
  - SENSORY DISTURBANCE [None]
